FAERS Safety Report 9507843 (Version 2)
Quarter: 2013Q4

REPORT INFORMATION
  Report Type: Report from Study
  Country: IT (occurrence: IT)
  Receive Date: 20130909
  Receipt Date: 20131009
  Transmission Date: 20140711
  Serious: Yes (Life-Threatening, Hospitalization)
  Sender: FDA-Public Use
  Company Number: IT-INCYTE CORPORATION-2013IN001978

PATIENT
  Sex: Male
  Weight: 80 kg

DRUGS (4)
  1. INC424 [Suspect]
     Indication: MYELOFIBROSIS
     Dosage: 20 MG, BID
     Route: 048
     Dates: start: 20130214, end: 20130314
  2. INC424 [Suspect]
     Dosage: 15 MG, BID
     Route: 048
     Dates: start: 20130315, end: 20130513
  3. INC424 [Suspect]
     Dosage: 20 MG, BID
     Route: 048
     Dates: start: 20130514, end: 20130805
  4. INC424 [Suspect]
     Dosage: 5 MG, BID
     Route: 048
     Dates: start: 20130806, end: 20130823

REACTIONS (1)
  - Splenic rupture [Recovered/Resolved]
